FAERS Safety Report 17356961 (Version 1)
Quarter: 2020Q3

REPORT INFORMATION
  Report Type: Spontaneous
  Country: US (occurrence: US)
  Receive Date: 20200131
  Receipt Date: 20200131
  Transmission Date: 20201105
  Serious: No
  Sender: FDA-Public Use
  Company Number: US-PFIZER INC-2020041527

PATIENT
  Age: 82 Year
  Sex: Female

DRUGS (4)
  1. NITROFURANTOIN. [Suspect]
     Active Substance: NITROFURANTOIN
     Dosage: UNK
  2. FERROUS SULFATE. [Suspect]
     Active Substance: FERROUS SULFATE
     Dosage: UNK
  3. DOXYCYCLINE HYCLATE. [Suspect]
     Active Substance: DOXYCYCLINE HYCLATE
     Dosage: UNK
  4. CODEINE [Suspect]
     Active Substance: CODEINE
     Dosage: UNK

REACTIONS (1)
  - Drug hypersensitivity [Unknown]
